FAERS Safety Report 24451704 (Version 1)
Quarter: 2024Q4

REPORT INFORMATION
  Report Type: Spontaneous
  Country: FR (occurrence: FR)
  Receive Date: 20241017
  Receipt Date: 20241017
  Transmission Date: 20250115
  Serious: No
  Sender: BLUEPRINT MEDICINES
  Company Number: FR-Blueprint Medicines Corporation-SO-FR-2024-002102

PATIENT
  Age: 63 Year
  Sex: Female

DRUGS (8)
  1. AVAPRITINIB [Suspect]
     Active Substance: AVAPRITINIB
     Indication: Indolent systemic mastocytosis
     Dosage: 25MG/50MG ALTERNATIVELY EACH DAY
     Route: 065
     Dates: start: 20240520
  2. AVAPRITINIB [Suspect]
     Active Substance: AVAPRITINIB
     Dosage: 25MG/50MG ALTERNATIVELY EACH DAY
     Route: 065
     Dates: start: 20240520
  3. LEVOCETIRIZINE [Concomitant]
     Active Substance: LEVOCETIRIZINE
     Indication: Indolent systemic mastocytosis
     Route: 048
  4. FAMOTIDINE [Concomitant]
     Active Substance: FAMOTIDINE
     Indication: Indolent systemic mastocytosis
     Route: 048
  5. SERTRALINE [Concomitant]
     Active Substance: SERTRALINE HYDROCHLORIDE
     Indication: Indolent systemic mastocytosis
     Route: 048
  6. ESOMEPRAZOLE [Concomitant]
     Active Substance: ESOMEPRAZOLE
     Indication: Indolent systemic mastocytosis
     Route: 048
  7. SOTALOL HYDROCHLORIDE [Concomitant]
     Active Substance: SOTALOL HYDROCHLORIDE
     Indication: Indolent systemic mastocytosis
     Route: 048
  8. SPIRONOLACTONE [Concomitant]
     Active Substance: SPIRONOLACTONE
     Indication: Indolent systemic mastocytosis
     Route: 048

REACTIONS (2)
  - Oedema [Not Recovered/Not Resolved]
  - Blood creatinine increased [Not Recovered/Not Resolved]

NARRATIVE: CASE EVENT DATE: 20240520
